FAERS Safety Report 4342988-3 (Version None)
Quarter: 2004Q1

REPORT INFORMATION
  Report Type: 
  Country: None (occurrence: None)
  Receive Date: 20040325
  Receipt Date: 20040211
  Transmission Date: 20041129
  Serious: No
  Sender: FDA-Public Use
  Company Number: USA030125663

PATIENT
  Age: 81 Year
  Sex: Female
  Weight: 56 kg

DRUGS (7)
  1. EVISTA [Suspect]
     Indication: OSTEOPOROSIS
     Dosage: 60 MG/DAY
  2. FORTEO [Suspect]
     Indication: OSTEOPOROSIS
     Dates: start: 20030301
  3. METHOTREXATE [Concomitant]
  4. PREDNISONE [Concomitant]
  5. CELEBREX [Concomitant]
  6. FOSAMAX [Concomitant]
  7. CALCIUM [Concomitant]

REACTIONS (4)
  - FOOT FRACTURE [None]
  - HOT FLUSH [None]
  - INJECTION SITE ERYTHEMA [None]
  - INJECTION SITE HAEMORRHAGE [None]
